FAERS Safety Report 5382556-8 (Version None)
Quarter: 2007Q3

REPORT INFORMATION
  Report Type: 
  Country: None (occurrence: None)
  Receive Date: 20070710
  Receipt Date: 20070627
  Transmission Date: 20080115
  Serious: Yes (Other)
  Sender: FDA-Public Use
  Company Number: PHBS2007JP11011

PATIENT
  Age: 10 Year
  Sex: Female

DRUGS (2)
  1. CYCLOSPORINE [Suspect]
     Indication: NEPHROTIC SYNDROME
     Route: 065
  2. STEROIDS NOS [Suspect]
     Indication: NEPHROTIC SYNDROME
     Route: 065

REACTIONS (6)
  - BODY HEIGHT BELOW NORMAL [None]
  - FOCAL GLOMERULOSCLEROSIS [None]
  - OSTEONECROSIS [None]
  - PROTEINURIA [None]
  - RENAL FAILURE ACUTE [None]
  - REVERSIBLE POSTERIOR LEUKOENCEPHALOPATHY SYNDROME [None]
